FAERS Safety Report 7911169-6 (Version None)
Quarter: 2011Q4

REPORT INFORMATION
  Report Type: 
  Country: None (occurrence: None)
  Receive Date: 20111109
  Receipt Date: 20111027
  Transmission Date: 20120403
  Serious: Yes (Death)
  Sender: FDA-Public Use
  Company Number: 2011MA015797

PATIENT
  Age: 65 Year
  Sex: Male

DRUGS (6)
  1. GLICLAZIDE [Concomitant]
  2. LIPITOR [Concomitant]
  3. VALPROATE SODIUM [Suspect]
     Indication: EPILEPSY
     Dosage: 200 MG;QD
  4. METFORMIN HYDROCHLORIDE [Suspect]
     Dosage: 850 MG;TID
  5. TEMAZEPAM [Concomitant]
  6. OMEPRAZOLE [Suspect]
     Dosage: 20 MG;QD

REACTIONS (2)
  - LEG AMPUTATION [None]
  - PSYCHOTIC DISORDER [None]
